FAERS Safety Report 13974240 (Version 1)
Quarter: 2017Q3

REPORT INFORMATION
  Report Type: Spontaneous
  Country: US (occurrence: US)
  Receive Date: 20170914
  Receipt Date: 20170914
  Transmission Date: 20171128
  Serious: Yes (Other)
  Sender: FDA-Public Use
  Company Number: US-PFIZER INC-2017392010

PATIENT
  Age: 72 Year
  Sex: Male
  Weight: 103 kg

DRUGS (18)
  1. AMLODIPINE [Concomitant]
     Active Substance: AMLODIPINE BESYLATE
     Dosage: UNK
  2. BACLOFEN. [Concomitant]
     Active Substance: BACLOFEN
     Dosage: UNK
  3. PREGABALIN. [Concomitant]
     Active Substance: PREGABALIN
     Dosage: UNK
  4. ISOSORBIDE MONONITRATE. [Concomitant]
     Active Substance: ISOSORBIDE MONONITRATE
     Dosage: UNK
  5. ATORVASTATIN [Concomitant]
     Active Substance: ATORVASTATIN
     Dosage: UNK
  6. ERTAPENEM [Concomitant]
     Active Substance: ERTAPENEM
     Indication: ENTEROBACTER INFECTION
     Dosage: 1000 MG, SINGLE
     Route: 042
  7. TERAZOSIN [Concomitant]
     Active Substance: TERAZOSIN\TERAZOSIN HYDROCHLORIDE
     Dosage: UNK
  8. ALLOPURINOL. [Concomitant]
     Active Substance: ALLOPURINOL
     Dosage: UNK
  9. TIZANIDINE. [Concomitant]
     Active Substance: TIZANIDINE
     Dosage: UNK
  10. VANCOMYCIN HCL [Suspect]
     Active Substance: VANCOMYCIN HYDROCHLORIDE
     Indication: EVIDENCE BASED TREATMENT
  11. DILTIAZEM. [Concomitant]
     Active Substance: DILTIAZEM
     Dosage: UNK
  12. LOPERAMIDE [Concomitant]
     Active Substance: LOPERAMIDE
     Dosage: UNK
  13. LOSARTAN. [Concomitant]
     Active Substance: LOSARTAN
     Dosage: UNK
  14. METOPROLOL. [Concomitant]
     Active Substance: METOPROLOL
     Dosage: UNK
  15. VANCOMYCIN HCL [Suspect]
     Active Substance: VANCOMYCIN HYDROCHLORIDE
     Indication: BACTERIAL INFECTION
     Dosage: UNK
     Route: 042
  16. ERTAPENEM [Concomitant]
     Active Substance: ERTAPENEM
     Indication: STAPHYLOCOCCAL INFECTION
  17. OMEPRAZOLE. [Concomitant]
     Active Substance: OMEPRAZOLE
     Dosage: UNK
  18. TRAMADOL. [Concomitant]
     Active Substance: TRAMADOL
     Dosage: UNK

REACTIONS (4)
  - Myoclonus [Recovered/Resolved]
  - Azotaemia [Unknown]
  - Hallucination [Recovered/Resolved]
  - Toxicity to various agents [Unknown]
